FAERS Safety Report 7524393-1 (Version None)
Quarter: 2011Q2

REPORT INFORMATION
  Report Type: 
  Country: None (occurrence: None)
  Receive Date: 20110601
  Receipt Date: 20110601
  Transmission Date: 20111010
  Serious: Yes (Disabling)
  Sender: FDA-Public Use
  Company Number: None

PATIENT
  Sex: Female
  Weight: 87.0906 kg

DRUGS (1)
  1. ACTOS [Suspect]
     Indication: DIABETES MELLITUS
     Dosage: 30 MG DAILY PO
     Route: 048
     Dates: start: 20080309, end: 20110110

REACTIONS (6)
  - VISUAL IMPAIRMENT [None]
  - CHEST PAIN [None]
  - VISION BLURRED [None]
  - MYALGIA [None]
  - VISUAL ACUITY REDUCED [None]
  - FATIGUE [None]
